FAERS Safety Report 8004185-X (Version None)
Quarter: 2011Q4

REPORT INFORMATION
  Report Type: 
  Country: None (occurrence: None)
  Receive Date: 20111223
  Receipt Date: 20111214
  Transmission Date: 20120403
  Serious: Yes (Hospitalization, Other)
  Sender: FDA-Public Use
  Company Number: BR-BIOGENIDEC-2010BI021966

PATIENT
  Age: 41 Year
  Sex: Male

DRUGS (12)
  1. CLONAZEPAM [Concomitant]
     Indication: DEPRESSION
  2. VENLAFAXINE [Concomitant]
  3. GABAPENTIN [Concomitant]
     Indication: PAIN IN EXTREMITY
  4. GABAPENTIN [Concomitant]
     Indication: BONE PAIN
  5. FLUOXETINE [Concomitant]
     Indication: DEPRESSION
  6. AVONEX [Suspect]
     Indication: MULTIPLE SCLEROSIS
     Route: 030
     Dates: start: 20100621, end: 20111001
  7. AVONEX [Suspect]
     Route: 030
     Dates: start: 20100621, end: 20111001
  8. FOLIC ACID [Concomitant]
     Indication: PAIN IN EXTREMITY
  9. SERTALINE [Concomitant]
     Indication: DEPRESSION
  10. DIAZEPAN [Concomitant]
  11. FOLIC ACID [Concomitant]
     Indication: BONE PAIN
  12. CARBAMAZEPINE [Concomitant]

REACTIONS (17)
  - FATIGUE [None]
  - HYPERAESTHESIA [None]
  - TREMOR [None]
  - BURNING SENSATION [None]
  - MUSCULAR WEAKNESS [None]
  - HEADACHE [None]
  - PYREXIA [None]
  - PAIN [None]
  - PARAESTHESIA [None]
  - MULTIPLE SCLEROSIS RELAPSE [None]
  - PAIN IN EXTREMITY [None]
  - CONVULSION [None]
  - SYNCOPE [None]
  - SLUGGISHNESS [None]
  - MEMORY IMPAIRMENT [None]
  - BLINDNESS [None]
  - CENTRAL NERVOUS SYSTEM LESION [None]
